FAERS Safety Report 9696055 (Version 2)
Quarter: 2014Q2

REPORT INFORMATION
  Report Type: Spontaneous
  Country: US (occurrence: US)
  Receive Date: 20131119
  Receipt Date: 20140523
  Transmission Date: 20141212
  Serious: Yes (Death, Hospitalization)
  Sender: FDA-Public Use
  Company Number: US-B.I. PHARMACEUTICALS,INC./RIDGEFIELD-2013-BI-37307BP

PATIENT
  Age: 66 Year
  Sex: Female
  Weight: 72.57 kg

DRUGS (6)
  1. PRADAXA [Suspect]
     Indication: ATRIAL FIBRILLATION
     Route: 065
     Dates: start: 20120917, end: 20121109
  2. CITALOPRAM [Concomitant]
     Route: 065
  3. CRESTOR [Concomitant]
     Route: 065
  4. CYCLOBENZAPRINE [Concomitant]
     Route: 065
  5. BENAZEPRIL [Concomitant]
     Route: 065
  6. HYDROCODONE [Concomitant]
     Route: 065

REACTIONS (4)
  - Subarachnoid haemorrhage [Fatal]
  - Acute respiratory failure [Fatal]
  - Heart injury [Unknown]
  - Hypoperfusion [Unknown]
